FAERS Safety Report 4691954-7 (Version None)
Quarter: 2005Q2

REPORT INFORMATION
  Report Type: 
  Country: None (occurrence: None)
  Receive Date: 20050616
  Receipt Date: 20050616
  Transmission Date: 20051028
  Serious: Yes (Other)
  Sender: FDA-Public Use
  Company Number: None

PATIENT
  Sex: Male
  Weight: 25.855 kg

DRUGS (2)
  1. CLARITIN [Suspect]
     Indication: ASTHMA
     Dosage: ONCE DAILY
  2. CLARITIN [Suspect]
     Indication: MULTIPLE ALLERGIES
     Dosage: ONCE DAILY

REACTIONS (3)
  - NAUSEA [None]
  - THROAT IRRITATION [None]
  - VOMITING [None]
